FAERS Safety Report 5108624-3 (Version None)
Quarter: 2006Q3

REPORT INFORMATION
  Report Type: 
  Country: None (occurrence: None)
  Receive Date: 20060915
  Receipt Date: 20060828
  Transmission Date: 20061208
  Serious: Yes (Life-Threatening, Hospitalization)
  Sender: FDA-Public Use
  Company Number: 2006SP000304

PATIENT
  Age: 60 Year
  Sex: Female
  Weight: 60 kg

DRUGS (3)
  1. AERIUS (DESLORATADINE) (DESLORATADINE) [Suspect]
     Dosage: PO
     Route: 048
     Dates: start: 20050901, end: 20060405
  2. ACETAMINOPHEN [Suspect]
     Dosage: PO
     Route: 048
     Dates: end: 20060405
  3. FELDENE (CON.) [Concomitant]

REACTIONS (17)
  - ASCITES [None]
  - ASTHENIA [None]
  - CHOLESTASIS [None]
  - COAGULATION FACTOR V LEVEL DECREASED [None]
  - HAEMANGIOMA [None]
  - HAEMOLYTIC ANAEMIA [None]
  - HEPATIC FAILURE [None]
  - HEPATIC FIBROSIS [None]
  - HEPATITIS [None]
  - HEPATOTOXICITY [None]
  - INFLAMMATION [None]
  - LYMPHOPENIA [None]
  - MACROPHAGE ACTIVATION [None]
  - PORTAL HYPERTENSION [None]
  - PROTHROMBIN TIME PROLONGED [None]
  - THROMBOCYTOPENIA [None]
  - THROMBOTIC MICROANGIOPATHY [None]
